FAERS Safety Report 4518951-6 (Version None)
Quarter: 2004Q4

REPORT INFORMATION
  Report Type: 
  Country: None (occurrence: None)
  Receive Date: 20041201
  Receipt Date: 20041122
  Transmission Date: 20050328
  Serious: Yes (Hospitalization, Other)
  Sender: FDA-Public Use
  Company Number: DE-2004-035516

PATIENT
  Age: 40 Year
  Sex: Female

DRUGS (2)
  1. MIRENA [Suspect]
     Dosage: 20 UG/DAY, CONT, INTRA-UTERINE
     Route: 015
     Dates: start: 20000901, end: 20041101
  2. GENERAL ANAESTHESIA [Concomitant]

REACTIONS (11)
  - AMENORRHOEA [None]
  - BILIARY CIRRHOSIS PRIMARY [None]
  - BLOOD AMYLASE INCREASED [None]
  - EPSTEIN-BARR VIRUS INFECTION [None]
  - GLOMERULONEPHRITIS PROLIFERATIVE [None]
  - IMMUNE SYSTEM DISORDER [None]
  - IUCD COMPLICATION [None]
  - LIVER DISORDER [None]
  - METRORRHAGIA [None]
  - RENAL INTERSTITIAL FIBROSIS [None]
  - SENSATION OF FOREIGN BODY [None]
